FAERS Safety Report 19191756 (Version 2)
Quarter: 2021Q3

REPORT INFORMATION
  Report Type: Report from Study
  Country: GB (occurrence: GB)
  Receive Date: 20210428
  Receipt Date: 20210713
  Transmission Date: 20211014
  Serious: Yes (Other)
  Sender: FDA-Public Use
  Company Number: GB-TAKEDA-2021TUS013717

PATIENT
  Age: 82 Year
  Sex: Male

DRUGS (1)
  1. VEDOLIZUMAB [Suspect]
     Active Substance: VEDOLIZUMAB
     Indication: COLITIS ULCERATIVE
     Dosage: 108 MILLIGRAM, Q2WEEKS
     Route: 058

REACTIONS (7)
  - Bowel movement irregularity [Unknown]
  - Blood pressure decreased [Unknown]
  - Balance disorder [Unknown]
  - Coeliac disease [Unknown]
  - Eczema [Unknown]
  - Constipation [Unknown]
  - Drug ineffective [Unknown]
